FAERS Safety Report 4452291-9 (Version None)
Quarter: 2004Q3

REPORT INFORMATION
  Report Type: 
  Country: None (occurrence: None)
  Receive Date: 20040917
  Receipt Date: 20040603
  Transmission Date: 20050211
  Serious: Yes (Death)
  Sender: FDA-Public Use
  Company Number: MX-ROCHE-369984

PATIENT
  Age: 61 Year
  Sex: Female

DRUGS (5)
  1. CAPECITABINE [Suspect]
     Indication: BREAST CANCER
     Dosage: NO UNITS WERE SPECIFIED.  DOSE GIVEN TWICE PER DAY FOR 14 DAYS FOLLOWED BY 1 WEEKS REST. 5 CYCLES R+
     Route: 048
     Dates: end: 20040415
  2. IXABEPILONE [Suspect]
     Indication: BREAST CANCER
     Dosage: NO UNITS SPECIFIED. 5 CYCLES RECEIVED.
     Route: 042
     Dates: end: 20040412
  3. DICLOFENAC [Concomitant]
     Dates: start: 20040412, end: 20040421
  4. GABAPENTIN [Concomitant]
     Dates: start: 20040212, end: 20040420
  5. AMITRIPTYLINE HCL [Concomitant]
     Dates: start: 20040212, end: 20040420

REACTIONS (16)
  - ASTHENIA [None]
  - BONE PAIN [None]
  - BREAST CANCER [None]
  - CARDIOPULMONARY FAILURE [None]
  - DEHYDRATION [None]
  - DIARRHOEA [None]
  - DRY MOUTH [None]
  - DRY SKIN [None]
  - HAEMATOCHEZIA [None]
  - HYPERTHERMIA [None]
  - HYPOVOLAEMIC SHOCK [None]
  - LIVEDO RETICULARIS [None]
  - PANCYTOPENIA [None]
  - PNEUMONIA [None]
  - PNEUMONITIS [None]
  - PULMONARY OEDEMA [None]
